FAERS Safety Report 11192973 (Version 1)
Quarter: 2015Q2

REPORT INFORMATION
  Report Type: Spontaneous
  Country: US (occurrence: US)
  Receive Date: 20150616
  Receipt Date: 20150616
  Transmission Date: 20150821
  Serious: No
  Sender: FDA-Public Use
  Company Number: US-PFIZER INC-2015199735

PATIENT
  Sex: Male

DRUGS (1)
  1. CHANTIX [Suspect]
     Active Substance: VARENICLINE TARTRATE
     Dosage: UNK
     Dates: start: 201505

REACTIONS (5)
  - Tremor [Unknown]
  - Panic reaction [Unknown]
  - Nervous system disorder [Unknown]
  - Nervousness [Unknown]
  - Dyspnoea [Unknown]
